FAERS Safety Report 4802996-2 (Version None)
Quarter: 2005Q4

REPORT INFORMATION
  Report Type: 
  Country: None (occurrence: None)
  Receive Date: 20051013
  Receipt Date: 20050928
  Transmission Date: 20060501
  Serious: Yes (Hospitalization)
  Sender: FDA-Public Use
  Company Number: GBS051018590

PATIENT
  Age: 69 Year
  Sex: Female

DRUGS (4)
  1. DULOXETINE HYDROCHLORIDE [Suspect]
     Indication: STRESS INCONTINENCE
     Dosage: 20 MG/2 DAY
     Dates: start: 20050901, end: 20050901
  2. NARDIL [Concomitant]
  3. MELOXICAM [Concomitant]
  4. EVOREL CONTI [Concomitant]

REACTIONS (1)
  - MALAISE [None]
